FAERS Safety Report 7410029-7 (Version None)
Quarter: 2011Q2

REPORT INFORMATION
  Report Type: 
  Country: None (occurrence: None)
  Receive Date: 20110412
  Receipt Date: 20110331
  Transmission Date: 20111010
  Serious: Yes (Hospitalization)
  Sender: FDA-Public Use
  Company Number: PHHO2011US00997

PATIENT
  Sex: Female
  Weight: 38 kg

DRUGS (10)
  1. CARVEDILOL [Concomitant]
     Indication: HYPERTENSION
  2. COREG [Concomitant]
     Indication: HYPERTENSION
     Dosage: UNK
  3. NAMENDA [Concomitant]
     Indication: DEMENTIA ALZHEIMER'S TYPE
     Dosage: UNK
  4. EXELON [Suspect]
     Dosage: 15 CM2 PATCH
     Route: 062
     Dates: start: 20110104, end: 20110110
  5. ASPIRIN [Concomitant]
     Indication: PROPHYLAXIS
  6. DECITABINE [Concomitant]
  7. NEXIUM [Concomitant]
  8. EXELON [Suspect]
     Indication: DEMENTIA ALZHEIMER'S TYPE
     Dosage: UNK
     Route: 058
     Dates: start: 20101201, end: 20110103
  9. RAMIPRIL [Concomitant]
     Indication: HYPERTENSION
     Dosage: UNK
  10. VYTORIN [Concomitant]
     Indication: HYPERLIPIDAEMIA
     Dosage: UNK

REACTIONS (6)
  - HYPOPHAGIA [None]
  - SOMNOLENCE [None]
  - MENTAL STATUS CHANGES [None]
  - AGITATION [None]
  - ASTHENIA [None]
  - DEHYDRATION [None]
